FAERS Safety Report 17428199 (Version 2)
Quarter: 2020Q1

REPORT INFORMATION
  Report Type: Spontaneous
  Country: FR (occurrence: FR)
  Receive Date: 20200217
  Receipt Date: 20200303
  Transmission Date: 20200409
  Serious: Yes (Other)
  Sender: FDA-Public Use
  Company Number: FR-BAYER-2020-023893

PATIENT
  Sex: Female

DRUGS (1)
  1. MIRENA [Suspect]
     Active Substance: LEVONORGESTREL
     Dosage: 20 ?G PER DAY, CONTINUOUSLY
     Route: 015
     Dates: start: 2016

REACTIONS (5)
  - Device breakage [None]
  - Embedded device [Not Recovered/Not Resolved]
  - Device expulsion [Recovered/Resolved]
  - Complication of device removal [None]
  - Metrorrhagia [None]

NARRATIVE: CASE EVENT DATE: 202001
